FAERS Safety Report 7272239-1 (Version None)
Quarter: 2011Q1

REPORT INFORMATION
  Report Type: 
  Country: None (occurrence: None)
  Receive Date: 20110203
  Receipt Date: 20110124
  Transmission Date: 20110831
  Serious: Yes (Other)
  Sender: FDA-Public Use
  Company Number: PHHY2011JP06995

PATIENT
  Age: 57 Year
  Sex: Female

DRUGS (2)
  1. NEORAL [Suspect]
     Indication: POLYMYOSITIS
     Dosage: 100 MG
     Route: 048
  2. SOTACOR [Concomitant]
     Route: 048

REACTIONS (2)
  - ELECTROCARDIOGRAM QT PROLONGED [None]
  - BRADYCARDIA [None]
